FAERS Safety Report 20245032 (Version 2)
Quarter: 2021Q4

REPORT INFORMATION
  Report Type: Spontaneous
  Country: TR (occurrence: TR)
  Receive Date: 20211229
  Receipt Date: 20211231
  Transmission Date: 20220303
  Serious: Yes (Life-Threatening, Hospitalization, Disabling, Other)
  Sender: FDA-Public Use
  Company Number: TR-002147023-NVSC2021TR283696

PATIENT
  Sex: Male

DRUGS (2)
  1. XOLAIR [Suspect]
     Active Substance: OMALIZUMAB
     Indication: Chronic spontaneous urticaria
     Dosage: UNK
     Route: 058
     Dates: start: 20190306, end: 20190808
  2. CETIRIZINE HYDROCHLORIDE [Concomitant]
     Active Substance: CETIRIZINE HYDROCHLORIDE
     Indication: Product used for unknown indication
     Dosage: 1 DOSAGE FORM, TID (3X1 /DAY)
     Route: 048

REACTIONS (5)
  - Malignant melanoma [Recovering/Resolving]
  - Metastases to nervous system [Unknown]
  - Tumour invasion [Unknown]
  - Lymphocytic infiltration [Unknown]
  - Ulcer [Unknown]
